FAERS Safety Report 24537861 (Version 1)
Quarter: 2024Q4

REPORT INFORMATION
  Report Type: Spontaneous
  Country: AU (occurrence: AU)
  Receive Date: 20241023
  Receipt Date: 20241023
  Transmission Date: 20250114
  Serious: Yes (Other)
  Sender: RANBAXY
  Company Number: AU-SUN PHARMACEUTICAL INDUSTRIES LTD-2024R1-469742

PATIENT
  Age: 87 Year
  Sex: Female

DRUGS (1)
  1. CEQUA [Suspect]
     Active Substance: CYCLOSPORINE
     Indication: Product used for unknown indication
     Dosage: UNK, OD
     Route: 047

REACTIONS (4)
  - Punctate keratitis [Recovering/Resolving]
  - Condition aggravated [Unknown]
  - Disturbance in attention [Recovering/Resolving]
  - Conjunctival hyperaemia [Recovering/Resolving]
